FAERS Safety Report 10736151 (Version 1)
Quarter: 2015Q1

REPORT INFORMATION
  Report Type: Spontaneous
  Country: US (occurrence: None)
  Receive Date: 20150122
  Receipt Date: 20150122
  Transmission Date: 20150721
  Serious: Yes (Other)
  Sender: FDA-Public Use
  Company Number: None

PATIENT
  Sex: Female

DRUGS (1)
  1. HARVONI [Suspect]
     Active Substance: LEDIPASVIR\SOFOSBUVIR
     Indication: HEPATITIS C
     Dosage: 1 TAB DAILY PO
     Route: 048
     Dates: start: 20141220, end: 20141223

REACTIONS (4)
  - Vomiting [None]
  - Feeding disorder [None]
  - Headache [None]
  - Insomnia [None]
